FAERS Safety Report 12040694 (Version 1)
Quarter: 2016Q1

REPORT INFORMATION
  Report Type: Spontaneous
  Country: GB (occurrence: GB)
  Receive Date: 20160208
  Receipt Date: 20160208
  Transmission Date: 20160526
  Serious: Yes (Other)
  Sender: FDA-Public Use
  Company Number: PHHY2016GB015657

PATIENT
  Age: 7 Year
  Sex: Male

DRUGS (1)
  1. MEZZOPRAM [Suspect]
     Active Substance: OMEPRAZOLE MAGNESIUM
     Indication: PRODUCT USED FOR UNKNOWN INDICATION
     Dosage: UNK UNK, QD
     Route: 065
     Dates: start: 20151225

REACTIONS (2)
  - Abdominal pain upper [Unknown]
  - Expired product administered [Unknown]

NARRATIVE: CASE EVENT DATE: 20151225
